FAERS Safety Report 4423264-7 (Version None)
Quarter: 2004Q3

REPORT INFORMATION
  Report Type: 
  Country: None (occurrence: None)
  Receive Date: 20040810
  Receipt Date: 20040810
  Transmission Date: 20050211
  Serious: Yes (Other)
  Sender: FDA-Public Use
  Company Number: None

PATIENT
  Age: 47 Year
  Sex: Female
  Weight: 84.369 kg

DRUGS (2)
  1. DESONIDE [Suspect]
     Dosage: SPARINGLY PRN TOPICAL
     Route: 061
     Dates: start: 20040715, end: 20040806
  2. TRIDESILON BRAND [Concomitant]

REACTIONS (2)
  - PHARMACEUTICAL PRODUCT COMPLAINT [None]
  - RASH [None]
